FAERS Safety Report 13576365 (Version 2)
Quarter: 2020Q1

REPORT INFORMATION
  Report Type: Spontaneous
  Country: JP (occurrence: JP)
  Receive Date: 20170524
  Receipt Date: 20200112
  Transmission Date: 20200409
  Serious: Yes (Death, Other)
  Sender: FDA-Public Use
  Company Number: JP-BRISTOL-MYERS SQUIBB COMPANY-BMS-2017-044377

PATIENT
  Age: 56 Year
  Sex: Male

DRUGS (2)
  1. OPDIVO [Suspect]
     Active Substance: NIVOLUMAB
     Indication: METASTATIC RENAL CELL CARCINOMA
     Dosage: 3 MG, UNK
     Route: 041
     Dates: start: 201701
  2. OPDIVO [Suspect]
     Active Substance: NIVOLUMAB
     Indication: PRODUCT USED FOR UNKNOWN INDICATION
     Dosage: 252 MILLIGRAM
     Route: 041
     Dates: start: 20170207, end: 20170328

REACTIONS (4)
  - Pulmonary infarction [Fatal]
  - Colitis [Fatal]
  - Malignant neoplasm progression [Fatal]
  - Pancytopenia [Unknown]

NARRATIVE: CASE EVENT DATE: 20170323
